FAERS Safety Report 20159136 (Version 1)
Quarter: 2021Q4

REPORT INFORMATION
  Report Type: Report from Study
  Country: JP (occurrence: JP)
  Receive Date: 20211208
  Receipt Date: 20211208
  Transmission Date: 20220303
  Serious: Yes (Other)
  Sender: FDA-Public Use
  Company Number: JP-ALXN-A202113351AA

PATIENT
  Sex: Female
  Weight: 8.715 kg

DRUGS (2)
  1. STRENSIQ [Suspect]
     Active Substance: ASFOTASE ALFA
     Indication: Hypophosphatasia
     Dosage: 2 MG/KG, TIW
     Route: 058
     Dates: start: 20191125
  2. VITAMIN B6 [Concomitant]
     Active Substance: PYRIDOXINE HYDROCHLORIDE
     Indication: Hypophosphatasia
     Dosage: 5 MG/KG, BID
     Route: 048
     Dates: start: 20191123

REACTIONS (2)
  - Inguinal hernia [Unknown]
  - Tooth loss [Unknown]
